FAERS Safety Report 5066744-6 (Version None)
Quarter: 2006Q3

REPORT INFORMATION
  Report Type: 
  Country: None (occurrence: None)
  Receive Date: 20060710
  Receipt Date: 20050519
  Transmission Date: 20061208
  Serious: Yes (Life-Threatening, Hospitalization)
  Sender: FDA-Public Use
  Company Number: US-2005-008536

PATIENT
  Age: 40 Year
  Sex: Female

DRUGS (1)
  1. ULTRAVIST 300 [Suspect]
     Indication: COMPUTERISED TOMOGRAM ABDOMEN
     Dosage: 96 ML, 1 DOSE, INTRAVENOUS
     Route: 042
     Dates: start: 20050519, end: 20050519

REACTIONS (1)
  - CHOKING SENSATION [None]
